FAERS Safety Report 8366924-8 (Version None)
Quarter: 2012Q2

REPORT INFORMATION
  Report Type: 
  Country: None (occurrence: None)
  Receive Date: 20120517
  Receipt Date: 20120507
  Transmission Date: 20120825
  Serious: Yes (Death)
  Sender: FDA-Public Use
  Company Number: US-ROCHE-1066309

PATIENT
  Sex: Female

DRUGS (3)
  1. EPIRUBICIN [Suspect]
     Indication: B-CELL LYMPHOMA
     Dates: start: 20100511
  2. RITUXAN [Suspect]
     Indication: B-CELL LYMPHOMA
     Dates: start: 20100511
  3. CYTOXAN [Suspect]
     Indication: B-CELL LYMPHOMA
     Dates: start: 20100511

REACTIONS (1)
  - B-CELL LYMPHOMA [None]
